FAERS Safety Report 20473399 (Version 3)
Quarter: 2022Q1

REPORT INFORMATION
  Report Type: Other
  Country: CA (occurrence: None)
  Receive Date: 20220215
  Receipt Date: 20220302
  Transmission Date: 20220423
  Serious: No
  Sender: FDA-Public Use
  Company Number: CA-ROCHE-3021942

PATIENT
  Age: 30 Year
  Sex: Female

DRUGS (1)
  1. OCREVUS [Suspect]
     Active Substance: OCRELIZUMAB
     Indication: Relapsing-remitting multiple sclerosis
     Dosage: THEN 600 MG 1 IN EVERY 6 MONTHS
     Route: 042
     Dates: start: 20181002

REACTIONS (2)
  - SARS-CoV-2 test positive [Unknown]
  - Pulmonary pain [Recovering/Resolving]

NARRATIVE: CASE EVENT DATE: 20220202
